FAERS Safety Report 5326360-5 (Version None)
Quarter: 2007Q2

REPORT INFORMATION
  Report Type: 
  Country: None (occurrence: None)
  Receive Date: 20070516
  Receipt Date: 20070515
  Transmission Date: 20071010
  Serious: Yes (Hospitalization, Disabling, Other)
  Sender: FDA-Public Use
  Company Number: B0468507A

PATIENT
  Age: 44 Year
  Sex: Male
  Weight: 84 kg

DRUGS (8)
  1. AUGMENTIN '125' [Suspect]
     Indication: URINARY TRACT INFECTION
     Route: 048
     Dates: start: 20070326, end: 20070328
  2. ASPIRIN [Concomitant]
  3. ATENOLOL [Concomitant]
  4. CLOPIDOGREL [Concomitant]
  5. GTN-S [Concomitant]
  6. METFORMIN [Concomitant]
  7. PERINDOPRIL [Concomitant]
  8. SIMVASTATIN [Concomitant]

REACTIONS (2)
  - JAUNDICE CHOLESTATIC [None]
  - MALAISE [None]
